FAERS Safety Report 18626399 (Version 1)
Quarter: 2020Q4

REPORT INFORMATION
  Report Type: Report from Study
  Country: US (occurrence: US)
  Receive Date: 20201217
  Receipt Date: 20201217
  Transmission Date: 20210114
  Serious: Yes (Other)
  Sender: FDA-Public Use
  Company Number: US-AUROBINDO-AUR-APL-2020-061707

PATIENT
  Age: 62 Year

DRUGS (5)
  1. DOXEPIN HYDROCHLORIDE. [Suspect]
     Active Substance: DOXEPIN HYDROCHLORIDE
     Indication: PRURITUS
     Dosage: UNK
     Route: 065
  2. GABAPENTIN. [Suspect]
     Active Substance: GABAPENTIN
     Indication: PRURITUS
     Dosage: 2700 MILLIGRAM, ONCE A DAY
     Route: 065
  3. MIRTAZAPINE. [Suspect]
     Active Substance: MIRTAZAPINE
     Indication: PRURITUS
     Dosage: UNK
     Route: 065
  4. AMITRIPTYLINE\KETAMINE\LIDOCAINE [Suspect]
     Active Substance: AMITRIPTYLINE\KETAMINE\LIDOCAINE
     Indication: PRURITUS
     Dosage: UNK
     Route: 061
  5. NALTREXONE [Suspect]
     Active Substance: NALTREXONE
     Indication: PRURITUS
     Dosage: 25 MILLIGRAM
     Route: 065

REACTIONS (1)
  - Treatment failure [Unknown]
